FAERS Safety Report 7560545-2 (Version None)
Quarter: 2011Q2

REPORT INFORMATION
  Report Type: 
  Country: None (occurrence: None)
  Receive Date: 20110621
  Receipt Date: 20100510
  Transmission Date: 20111010
  Serious: No
  Sender: FDA-Public Use
  Company Number: US-ASTRAZENECA-2010SE21138

PATIENT
  Age: 18 Year
  Sex: Male
  Weight: 81.6 kg

DRUGS (3)
  1. ENTOCORT EC [Suspect]
     Indication: COLITIS
     Route: 048
     Dates: start: 20090101
  2. ENTOCORT EC [Suspect]
     Route: 048
  3. ENTOCORT EC [Suspect]
     Route: 048

REACTIONS (4)
  - PHARYNGITIS [None]
  - ULCER [None]
  - TONSILLITIS [None]
  - GASTROOESOPHAGEAL REFLUX DISEASE [None]
